FAERS Safety Report 11892638 (Version 2)
Quarter: 2016Q2

REPORT INFORMATION
  Report Type: Spontaneous
  Country: US (occurrence: US)
  Receive Date: 20160106
  Receipt Date: 20160602
  Transmission Date: 20160815
  Serious: Yes (Other)
  Sender: FDA-Public Use
  Company Number: US-JNJFOC-20151201828

PATIENT
  Age: 55 Year
  Sex: Male

DRUGS (6)
  1. PRAZOSIN [Suspect]
     Active Substance: PRAZOSIN
     Indication: AGITATION
     Route: 048
  2. HALOPERIDOL. [Suspect]
     Active Substance: HALOPERIDOL
     Indication: AGITATION
     Dosage: EVERY 12 HOUR AS NEEDED
     Route: 042
  3. CEFTRIAXONE. [Concomitant]
     Active Substance: CEFTRIAXONE
     Indication: STREPTOCOCCAL BACTERAEMIA
     Route: 042
  4. RISPERIDONE. [Suspect]
     Active Substance: RISPERIDONE
     Indication: AGITATION
     Dosage: AT BEDTIME
     Route: 048
  5. CEFTRIAXONE. [Concomitant]
     Active Substance: CEFTRIAXONE
     Indication: ACUTE ENDOCARDITIS
     Route: 042
  6. HALOPERIDOL. [Suspect]
     Active Substance: HALOPERIDOL
     Indication: AGITATION
     Dosage: EVERY HOUR AS NEEDED
     Route: 048

REACTIONS (2)
  - Parkinsonism [Recovering/Resolving]
  - Dysphagia [Recovering/Resolving]
